FAERS Safety Report 16696504 (Version 1)
Quarter: 2019Q3

REPORT INFORMATION
  Report Type: Report from Study
  Country: DE (occurrence: DE)
  Receive Date: 20190813
  Receipt Date: 20190813
  Transmission Date: 20191004
  Serious: Yes (Other)
  Sender: FDA-Public Use
  Company Number: DE-MYLANLABS-2019M1074739

PATIENT
  Age: 46 Year
  Sex: Female

DRUGS (2)
  1. TRASTUZUMAB. [Suspect]
     Active Substance: TRASTUZUMAB
     Indication: HER-2 POSITIVE BREAST CANCER
     Dosage: 500 MILLIGRAM, Q3W
     Route: 042
     Dates: start: 20140424
  2. PERTUZUMAB. [Suspect]
     Active Substance: PERTUZUMAB
     Indication: HER-2 POSITIVE BREAST CANCER
     Dosage: 840 MILLIGRAM, TOTAL
     Route: 042
     Dates: start: 20140424

REACTIONS (5)
  - Urinary tract infection [Recovered/Resolved]
  - Thrombosis [Recovered/Resolved]
  - Visual field defect [Recovered/Resolved]
  - Neutropenia [Recovered/Resolved]
  - Leukopenia [Recovered/Resolved]

NARRATIVE: CASE EVENT DATE: 20140504
